FAERS Safety Report 16025939 (Version 1)
Quarter: 2019Q1

REPORT INFORMATION
  Report Type: Spontaneous
  Country: SE (occurrence: SE)
  Receive Date: 20190302
  Receipt Date: 20190302
  Transmission Date: 20190418
  Serious: Yes (Hospitalization)
  Sender: FDA-Public Use
  Company Number: SE-ACCORD-110480

PATIENT
  Age: 58 Year
  Sex: Female

DRUGS (13)
  1. OXYNORM [Concomitant]
     Active Substance: OXYCODONE HYDROCHLORIDE
  2. ALVEDON [Concomitant]
     Active Substance: ACETAMINOPHEN
  3. ZARZIO [Concomitant]
     Active Substance: FILGRASTIM
     Dosage: IN CONNECTION WITH CHEMOTHERAPY TREATMENT
  4. STILNOCT [Concomitant]
     Active Substance: ZOLPIDEM TARTRATE
  5. IPREN [Concomitant]
     Active Substance: IBUPROFEN
  6. PRIMPERAN [Concomitant]
     Active Substance: METOCLOPRAMIDE HYDROCHLORIDE
  7. BETAPRED [Concomitant]
     Active Substance: BETAMETHASONE SODIUM PHOSPHATE
     Dosage: IN CONNECTION WITH CHEMOTHERAPY TREATMENT
  8. PRAMIPEXOLE/PRAMIPEXOLE DIHYDROCHLORIDE [Concomitant]
  9. DOCETAXEL. [Suspect]
     Active Substance: DOCETAXEL
     Indication: BREAST CANCER
     Route: 042
     Dates: start: 201808
  10. EMOVAT [Concomitant]
  11. BUFOMIX EASYHALER [Concomitant]
     Active Substance: BUDESONIDE\FORMOTEROL FUMARATE
  12. OMEPRAZOLE. [Concomitant]
     Active Substance: OMEPRAZOLE
  13. ZOLEDRONIC ACID [Concomitant]
     Active Substance: ZOLEDRONIC ACID
     Route: 042

REACTIONS (2)
  - Rash [Recovered/Resolved]
  - Bone marrow toxicity [Recovered/Resolved]

NARRATIVE: CASE EVENT DATE: 20180813
